FAERS Safety Report 17753289 (Version 1)
Quarter: 2020Q2

REPORT INFORMATION
  Report Type: Spontaneous
  Country: US (occurrence: US)
  Receive Date: 20200506
  Receipt Date: 20200506
  Transmission Date: 20200714
  Serious: No
  Sender: FDA-Public Use
  Company Number: US-TAKEDA-2020TUS021314

PATIENT
  Age: 52 Year
  Sex: Female

DRUGS (1)
  1. NINLARO [Suspect]
     Active Substance: IXAZOMIB CITRATE
     Indication: BONE MARROW TRANSPLANT
     Dosage: 4 MILLIGRAM
     Route: 065
     Dates: start: 202004

REACTIONS (1)
  - Muscle spasms [Unknown]
